FAERS Safety Report 19894444 (Version 1)
Quarter: 2021Q3

REPORT INFORMATION
  Report Type: Spontaneous
  Country: US (occurrence: US)
  Receive Date: 20210929
  Receipt Date: 20210929
  Transmission Date: 20211014
  Serious: Yes (Disabling)
  Sender: FDA-Public Use
  Company Number: None

PATIENT
  Age: 21 Year
  Sex: Male
  Weight: 72 kg

DRUGS (1)
  1. THC?0 [Suspect]
     Active Substance: .DELTA.9-TETRAHYDROCANNABINOL ACETATE
     Indication: DRUG THERAPY
     Dates: start: 20210818, end: 20210818

REACTIONS (5)
  - Psychotic disorder [None]
  - Insomnia [None]
  - Emotional disorder [None]
  - Tachyphrenia [None]
  - Mania [None]

NARRATIVE: CASE EVENT DATE: 20210818
